FAERS Safety Report 9175417 (Version 3)
Quarter: 2013Q2

REPORT INFORMATION
  Report Type: Spontaneous
  Country: US (occurrence: US)
  Receive Date: 20130320
  Receipt Date: 20130625
  Transmission Date: 20140414
  Serious: Yes (Disabling, Other)
  Sender: FDA-Public Use
  Company Number: US-009507513-1112USA00468

PATIENT
  Sex: Female

DRUGS (3)
  1. FOSAMAX [Suspect]
     Indication: OSTEOPOROSIS
     Dosage: 70 MG UNK
     Route: 048
  2. FOSAMAX PLUS D [Suspect]
     Indication: OSTEOPOROSIS
     Dosage: 70 MG, UNK
     Route: 048
     Dates: end: 2010
  3. ALENDRONATE SODIUM [Suspect]
     Indication: OSTEOPOROSIS
     Dosage: 70 MG, UNK
     Route: 048

REACTIONS (11)
  - Knee arthroplasty [Not Recovered/Not Resolved]
  - Adverse event [Unknown]
  - Fracture nonunion [Not Recovered/Not Resolved]
  - Arthritis [Not Recovered/Not Resolved]
  - Osteonecrosis of jaw [Unknown]
  - Oesophageal disorder [Unknown]
  - Periodontitis [Unknown]
  - Dental plaque [Unknown]
  - Hypertension [Unknown]
  - Drug ineffective [Unknown]
  - Dysphagia [Unknown]
